FAERS Safety Report 25020740 (Version 1)
Quarter: 2025Q1

REPORT INFORMATION
  Report Type: Spontaneous
  Country: US (occurrence: US)
  Receive Date: 20250227
  Receipt Date: 20250227
  Transmission Date: 20250408
  Serious: No
  Sender: PRIMUS PHARMACEUTICALS
  Company Number: US-PRIMUS-2024-US-066045

PATIENT
  Age: 83 Year
  Sex: Female

DRUGS (13)
  1. SERNIVO [Suspect]
     Active Substance: BETAMETHASONE DIPROPIONATE
     Indication: Rash
     Route: 061
  2. SPIRONOLACTONE [Concomitant]
     Active Substance: SPIRONOLACTONE
  3. SOTALOL [Concomitant]
     Active Substance: SOTALOL
  4. LOSARTAN [Concomitant]
     Active Substance: LOSARTAN
  5. ALENDRONATE [Concomitant]
     Active Substance: ALENDRONATE SODIUM
  6. TIKOSYN [Concomitant]
     Active Substance: DOFETILIDE
  7. TIADYLT ER [Concomitant]
     Active Substance: DILTIAZEM HYDROCHLORIDE
  8. KEFLEX [Concomitant]
     Active Substance: CEPHALEXIN
  9. ATORVASTATIN [Concomitant]
     Active Substance: ATORVASTATIN
  10. TRELEGY ELLIPTA [Concomitant]
     Active Substance: FLUTICASONE FUROATE\UMECLIDINIUM BROMIDE\VILANTEROL TRIFENATATE
  11. Ellipta [Concomitant]
  12. i?pratropium bromide [Concomitant]
  13. XARELTO [Concomitant]
     Active Substance: RIVAROXABAN

REACTIONS (2)
  - Skin atrophy [Unknown]
  - Product use in unapproved indication [Recovered/Resolved]
